FAERS Safety Report 21308379 (Version 2)
Quarter: 2022Q4

REPORT INFORMATION
  Report Type: Spontaneous
  Country: JP (occurrence: JP)
  Receive Date: 20220908
  Receipt Date: 20221025
  Transmission Date: 20230112
  Serious: Yes (Other)
  Sender: FDA-Public Use
  Company Number: JP-BAXTER-2022BAX019160

PATIENT
  Age: 5 Year
  Sex: Male

DRUGS (3)
  1. CYCLOPHOSPHAMIDE [Suspect]
     Active Substance: CYCLOPHOSPHAMIDE
     Dosage: 8 COURSES
     Route: 065
  2. VINCRISTINE [Suspect]
     Active Substance: VINCRISTINE
     Dosage: 8 COURSES
     Route: 065
  3. CISPLATIN [Suspect]
     Active Substance: CISPLATIN
     Dosage: 8 COURSES
     Route: 065

REACTIONS (9)
  - Mental impairment [Unknown]
  - Mutism [Unknown]
  - Anxiety [Unknown]
  - Stubbornness [Unknown]
  - Social avoidant behaviour [Unknown]
  - Aggression [Unknown]
  - Selective mutism [Unknown]
  - Aphasia [Unknown]
  - Paranoid personality disorder [Unknown]
